FAERS Safety Report 13883333 (Version 1)
Quarter: 2017Q3

REPORT INFORMATION
  Report Type: Spontaneous
  Country: US (occurrence: US)
  Receive Date: 20170818
  Receipt Date: 20170818
  Transmission Date: 20171127
  Serious: No
  Sender: FDA-Public Use
  Company Number: US-NEOS THERAPEUTICS, LP-2017NEO00039

PATIENT
  Sex: Female
  Weight: 105.67 kg

DRUGS (11)
  1. METFORMIN [Concomitant]
     Active Substance: METFORMIN HYDROCHLORIDE
  2. NYSTATIN. [Concomitant]
     Active Substance: NYSTATIN
  3. LITHIUM. [Concomitant]
     Active Substance: LITHIUM
  4. ADZENYS XR-ODT [Suspect]
     Active Substance: AMPHETAMINE
     Indication: BIPOLAR DISORDER
     Dosage: 18.8 MG, 1X/DAY
     Route: 048
  5. CLONAZEPAM. [Concomitant]
     Active Substance: CLONAZEPAM
  6. ZOLPIDEM [Concomitant]
     Active Substance: ZOLPIDEM\ZOLPIDEM TARTRATE
  7. LAMICTAL [Concomitant]
     Active Substance: LAMOTRIGINE
     Dosage: UNK
  8. ARMOUR THYROID [Concomitant]
     Active Substance: THYROID, PORCINE
  9. LEXAPRO [Concomitant]
     Active Substance: ESCITALOPRAM OXALATE
  10. HYDROCORTISONE. [Concomitant]
     Active Substance: HYDROCORTISONE
  11. ADZENYS XR-ODT [Suspect]
     Active Substance: AMPHETAMINE
     Indication: BORDERLINE PERSONALITY DISORDER

REACTIONS (2)
  - Off label use [Not Recovered/Not Resolved]
  - Anorgasmia [Not Recovered/Not Resolved]
